FAERS Safety Report 8120952-6 (Version None)
Quarter: 2012Q1

REPORT INFORMATION
  Report Type: 
  Country: None (occurrence: None)
  Receive Date: 20120208
  Receipt Date: 20120127
  Transmission Date: 20120608
  Serious: Yes (Hospitalization)
  Sender: FDA-Public Use
  Company Number: JP-US-EMD SERONO, INC.-7109283

PATIENT
  Age: 26 Year
  Sex: Female

DRUGS (3)
  1. GONAL-F [Suspect]
     Indication: PRODUCT USED FOR UNKNOWN INDICATION
     Dosage: 5-6TIMES
     Route: 058
  2. CLOMIFENE [Concomitant]
     Indication: PRODUCT USED FOR UNKNOWN INDICATION
  3. PREGNYL [Concomitant]
     Indication: PRODUCT USED FOR UNKNOWN INDICATION

REACTIONS (4)
  - OVARIAN TORSION [None]
  - PREGNANCY [None]
  - BENIGN HYDATIDIFORM MOLE [None]
  - OVARIAN HYPERSTIMULATION SYNDROME [None]
